FAERS Safety Report 4647050-8 (Version None)
Quarter: 2005Q2

REPORT INFORMATION
  Report Type: 
  Country: None (occurrence: None)
  Receive Date: 20050331
  Receipt Date: 20050228
  Transmission Date: 20051028
  Serious: No
  Sender: FDA-Public Use
  Company Number: 05P-163-0292219-00

PATIENT
  Age: 68 Year
  Sex: Female
  Weight: 86.637 kg

DRUGS (5)
  1. HUMIRA [Suspect]
     Indication: RHEUMATOID ARTHRITIS
     Dosage: 40 MG, 1 IN 2 WK, SUBCUTANEOUS
     Route: 058
     Dates: start: 20030901, end: 20050225
  2. OMEPRAZOLE [Concomitant]
  3. HYDROXYCHLOROQUINE PHOSPHATE [Concomitant]
  4. CELECOXIB [Concomitant]
  5. ACETAMINOPHEN [Concomitant]

REACTIONS (2)
  - RASH PRURITIC [None]
  - VIRAL INFECTION [None]
